FAERS Safety Report 7051880-5 (Version None)
Quarter: 2010Q4

REPORT INFORMATION
  Report Type: 
  Country: None (occurrence: None)
  Receive Date: 20101019
  Receipt Date: 20101015
  Transmission Date: 20110411
  Serious: Yes (Other)
  Sender: FDA-Public Use
  Company Number: GXKR2010DE11644

PATIENT
  Age: 61 Year
  Sex: Female

DRUGS (3)
  1. METRONIDAZOLE [Suspect]
     Indication: PERIODONTAL DISEASE
     Dosage: 400 MG, TID
     Route: 048
  2. AMOXI 1A PHARMA (NGX) [Suspect]
     Indication: PERIODONTAL DISEASE
     Dosage: 1000 MG, TID
     Route: 048
  3. THYROXIN [Concomitant]
     Indication: THYROID DISORDER
     Route: 048

REACTIONS (2)
  - PRURITUS [None]
  - SNEEZING [None]
